FAERS Safety Report 25473573 (Version 1)
Quarter: 2025Q2

REPORT INFORMATION
  Report Type: Spontaneous
  Country: BR (occurrence: BR)
  Receive Date: 20250624
  Receipt Date: 20250624
  Transmission Date: 20250717
  Serious: Yes (Other)
  Sender: MYLAN
  Company Number: BR-MYLANLABS-2025M1051417

PATIENT
  Age: 80 Year
  Sex: Female
  Weight: 102 kg

DRUGS (16)
  1. XALATAN [Suspect]
     Active Substance: LATANOPROST
     Indication: Glaucoma
     Dosage: 1 GTT DROPS, PM (1 DROP ONCE A DAY, BEFORE SLEEPING)
     Route: 047
     Dates: start: 2015
  2. XALATAN [Suspect]
     Active Substance: LATANOPROST
     Dosage: 1 GTT DROPS, PM (1 DROP ONCE A DAY, BEFORE SLEEPING)
     Dates: start: 2015
  3. XALATAN [Suspect]
     Active Substance: LATANOPROST
     Dosage: 1 GTT DROPS, PM (1 DROP ONCE A DAY, BEFORE SLEEPING)
     Dates: start: 2015
  4. XALATAN [Suspect]
     Active Substance: LATANOPROST
     Dosage: 1 GTT DROPS, PM (1 DROP ONCE A DAY, BEFORE SLEEPING)
     Route: 047
     Dates: start: 2015
  5. XALATAN [Suspect]
     Active Substance: LATANOPROST
     Dosage: 1 GTT DROPS, PM (ONCE AT NIGHT)
     Route: 047
     Dates: start: 20250610, end: 20250613
  6. XALATAN [Suspect]
     Active Substance: LATANOPROST
     Dosage: 1 GTT DROPS, PM (ONCE AT NIGHT)
     Dates: start: 20250610, end: 20250613
  7. XALATAN [Suspect]
     Active Substance: LATANOPROST
     Dosage: 1 GTT DROPS, PM (ONCE AT NIGHT)
     Dates: start: 20250610, end: 20250613
  8. XALATAN [Suspect]
     Active Substance: LATANOPROST
     Dosage: 1 GTT DROPS, PM (ONCE AT NIGHT)
     Route: 047
     Dates: start: 20250610, end: 20250613
  9. XALATAN [Suspect]
     Active Substance: LATANOPROST
     Route: 065
  10. XALATAN [Suspect]
     Active Substance: LATANOPROST
     Route: 065
  11. XALATAN [Suspect]
     Active Substance: LATANOPROST
  12. XALATAN [Suspect]
     Active Substance: LATANOPROST
  13. ALPHAGAN P [Suspect]
     Active Substance: BRIMONIDINE TARTRATE
     Indication: Product used for unknown indication
  14. ALPHAGAN P [Suspect]
     Active Substance: BRIMONIDINE TARTRATE
     Route: 065
  15. ALPHAGAN P [Suspect]
     Active Substance: BRIMONIDINE TARTRATE
     Route: 065
  16. ALPHAGAN P [Suspect]
     Active Substance: BRIMONIDINE TARTRATE

REACTIONS (4)
  - Diabetes mellitus [Not Recovered/Not Resolved]
  - Hypertension [Not Recovered/Not Resolved]
  - Eye irritation [Recovered/Resolved]
  - Vision blurred [Recovered/Resolved]

NARRATIVE: CASE EVENT DATE: 20250610
